FAERS Safety Report 23208466 (Version 1)
Quarter: 2023Q4

REPORT INFORMATION
  Report Type: Spontaneous
  Country: US (occurrence: US)
  Receive Date: 20231121
  Receipt Date: 20231121
  Transmission Date: 20240109
  Serious: Yes (Hospitalization)
  Sender: FDA-Public Use
  Company Number: US-GLAXOSMITHKLINE-US2023157590

PATIENT

DRUGS (1)
  1. MEPRON [Suspect]
     Active Substance: ATOVAQUONE
     Indication: Lung transplant
     Dosage: 15 ML, QD, 750MG/5ML

REACTIONS (1)
  - Influenza [Unknown]

NARRATIVE: CASE EVENT DATE: 20231109
